FAERS Safety Report 5128959-8 (Version None)
Quarter: 2006Q4

REPORT INFORMATION
  Report Type: 
  Country: None (occurrence: None)
  Receive Date: 20061016
  Receipt Date: 20061016
  Transmission Date: 20070319
  Serious: Yes (Hospitalization)
  Sender: FDA-Public Use
  Company Number: None

PATIENT
  Sex: Female
  Weight: 55.4 kg

DRUGS (6)
  1. CYCLOPHOSPHAMIDE [Suspect]
     Dosage: 1824 MG
     Dates: end: 20060916
  2. DAUNORUBICIN HCL [Suspect]
     Dosage: 366 MG
     Dates: end: 20060918
  3. DEXAMETHASONE TAB [Suspect]
     Dosage: 104 MG
     Dates: end: 20060922
  4. G-CSF (FILGRASTIM, AMGEN) [Suspect]
     Dosage: 8160 MG
     Dates: end: 20061002
  5. ELSPAR [Suspect]
     Dosage: 45600 MG
     Dates: end: 20061008
  6. VINCRISTINE SULFATE [Suspect]
     Dosage: 6 MG
     Dates: end: 20061007

REACTIONS (4)
  - ABDOMINAL PAIN [None]
  - DYSURIA [None]
  - LIVER FUNCTION TEST ABNORMAL [None]
  - WHITE BLOOD CELL COUNT DECREASED [None]
